FAERS Safety Report 4609323-4 (Version None)
Quarter: 2005Q2

REPORT INFORMATION
  Report Type: 
  Country: None (occurrence: None)
  Receive Date: 20050301
  Receipt Date: 20041027
  Transmission Date: 20051028
  Serious: No
  Sender: FDA-Public Use
  Company Number: WAES 0410USA01013

PATIENT
  Sex: Female
  Weight: 83.9154 kg

DRUGS (4)
  1. ZETIA [Suspect]
     Dosage: PO
  2. ACTIVELLA [Concomitant]
  3. ATACAND [Concomitant]
  4. HYDRODIURIL [Concomitant]

REACTIONS (2)
  - NAUSEA [None]
  - PAIN IN EXTREMITY [None]
